FAERS Safety Report 11572700 (Version 1)
Quarter: 2015Q3

REPORT INFORMATION
  Report Type: Spontaneous
  Country: US (occurrence: US)
  Receive Date: 20150929
  Receipt Date: 20150929
  Transmission Date: 20151125
  Serious: Yes (Hospitalization, Other)
  Sender: FDA-Public Use
  Company Number: US-BAUSCH-BL-2015-022462

PATIENT
  Sex: Female

DRUGS (2)
  1. XENAZINE [Suspect]
     Active Substance: TETRABENAZINE
     Indication: TARDIVE DYSKINESIA
     Route: 048
     Dates: start: 201407
  2. XENAZINE [Suspect]
     Active Substance: TETRABENAZINE
     Indication: TREMOR

REACTIONS (7)
  - Off label use [Not Recovered/Not Resolved]
  - Visual acuity reduced [Unknown]
  - Fatigue [Unknown]
  - Cerebrovascular accident [Unknown]
  - Infection [Unknown]
  - White blood cell count decreased [Unknown]
  - Tremor [Unknown]

NARRATIVE: CASE EVENT DATE: 2014
